FAERS Safety Report 6153920-4 (Version None)
Quarter: 2009Q2

REPORT INFORMATION
  Report Type: 
  Country: None (occurrence: None)
  Receive Date: 20090414
  Receipt Date: 20090402
  Transmission Date: 20091009
  Serious: Yes (Death, Hospitalization, Other)
  Sender: FDA-Public Use
  Company Number: JP-BAYER-200910910BYL

PATIENT
  Age: 57 Year
  Sex: Male
  Weight: 62 kg

DRUGS (32)
  1. FLUDARA [Suspect]
     Indication: ALLOGENIC BONE MARROW TRANSPLANTATION THERAPY
     Dosage: TOTAL DAILY DOSE: 44 MG  UNIT DOSE: 50 MG
     Route: 042
     Dates: start: 20080617, end: 20080621
  2. MELPHALAN [Concomitant]
     Indication: ALLOGENIC BONE MARROW TRANSPLANTATION THERAPY
     Dosage: AS USED: 140 MG
     Route: 042
     Dates: start: 20080622, end: 20080622
  3. CYTARABINE [Concomitant]
     Indication: ALLOGENIC BONE MARROW TRANSPLANTATION THERAPY
     Dosage: AS USED: 175 MG
     Route: 042
     Dates: start: 20080617, end: 20080621
  4. CYTARABINE [Concomitant]
     Dosage: AS USED: 35 MG
     Route: 042
     Dates: start: 20080612, end: 20080616
  5. PROGRAF [Concomitant]
     Indication: PROPHYLAXIS AGAINST GRAFT VERSUS HOST DISEASE
     Dosage: AS USED: 5 MG
     Route: 042
     Dates: start: 20080630, end: 20080712
  6. GRAN [Concomitant]
     Dosage: AS USED: 300 ?G
     Route: 042
     Dates: start: 20080629, end: 20080922
  7. DALACIN-S [Concomitant]
     Dosage: AS USED: 600 MG
     Route: 042
     Dates: start: 20080702, end: 20080703
  8. MEROPEN [Concomitant]
     Dosage: AS USED: 0.5 G
     Route: 042
     Dates: start: 20080703, end: 20080911
  9. TAZOCIN [Concomitant]
     Dosage: AS USED: 2.5 G
     Route: 042
     Dates: start: 20080709, end: 20080721
  10. HANP [Concomitant]
     Dosage: AS USED: 2000 ?G
     Route: 042
     Dates: start: 20080713, end: 20080713
  11. SANDIMMUNE [Concomitant]
     Indication: PROPHYLAXIS AGAINST GRAFT VERSUS HOST DISEASE
     Dosage: AS USED: 25 MG
     Route: 042
     Dates: start: 20080722, end: 20080921
  12. CEFZON [Concomitant]
     Dosage: AS USED: 300 MG
     Route: 048
     Dates: start: 20080617, end: 20080619
  13. BAKTAR [Concomitant]
     Indication: INFECTION PROPHYLAXIS
     Dosage: AS USED: 2 DF  UNIT DOSE: 1 DF
     Route: 048
     Dates: start: 20080617, end: 20080623
  14. URSO 250 [Concomitant]
     Dosage: AS USED: 300 MG
     Route: 048
     Dates: start: 20080618, end: 20080920
  15. LANSOPRAZOLE [Concomitant]
     Dosage: TOTAL DAILY DOSE: 15 MG  UNIT DOSE: 15 MG
     Route: 048
     Dates: start: 20080620, end: 20080922
  16. LACB-R [Concomitant]
     Dosage: AS USED: 3 G
     Route: 048
     Dates: start: 20080620, end: 20080712
  17. POLYMYXIN B SULFATE [Concomitant]
     Indication: INFECTION PROPHYLAXIS
     Dosage: AS USED: 3 DF  UNIT DOSE: 1 DF
     Route: 048
     Dates: start: 20080620, end: 20080712
  18. ZOVIRAX [Concomitant]
     Indication: INFECTION PROPHYLAXIS
     Dosage: AS USED: 1000 MG
     Route: 048
     Dates: start: 20080620, end: 20080922
  19. DIFLUCAN [Concomitant]
     Indication: INFECTION PROPHYLAXIS
     Dosage: AS USED: 200 MG
     Route: 048
     Dates: start: 20080624, end: 20080730
  20. NORVASC [Concomitant]
     Dosage: TOTAL DAILY DOSE: 2.5 MG  UNIT DOSE: 2.5 MG
     Route: 048
     Dates: start: 20080727, end: 20080812
  21. FRAGMIN [Concomitant]
     Indication: INFECTION PROPHYLAXIS
     Dosage: AS USED: 2500 IU
     Route: 042
     Dates: start: 20080714, end: 20080912
  22. PREDNISOLONE [Concomitant]
     Dosage: AS USED: 50 MG
     Route: 048
     Dates: start: 20080730, end: 20080812
  23. ALLOID G [Concomitant]
     Dosage: AS USED: 60 ML
     Route: 048
     Dates: start: 20080804, end: 20080922
  24. SLOW-K [Concomitant]
     Dosage: AS USED: 1200 MG
     Route: 048
     Dates: start: 20080809, end: 20080811
  25. VFEND [Concomitant]
     Dosage: AS USED: 325 MG
     Route: 042
     Dates: start: 20080730, end: 20080827
  26. DENOSINE [Concomitant]
     Indication: INFECTION PROPHYLAXIS
     Dosage: AS USED: 130 MG
     Route: 042
     Dates: start: 20080811, end: 20080821
  27. INTRALIPID 10% [Concomitant]
     Dosage: AS USED: 100 ML
     Route: 042
     Dates: start: 20080813, end: 20080817
  28. ELEMENMIC [Concomitant]
     Indication: INFECTION PROPHYLAXIS
     Dosage: AS USED: 2 ML
     Route: 042
     Dates: start: 20080814, end: 20080831
  29. FUNGUARD [Concomitant]
     Dosage: AS USED: 50 MG
     Route: 042
     Dates: start: 20080828, end: 20080920
  30. CONCENTRATED RED CELLS [Concomitant]
     Indication: PACKED RED BLOOD CELL TRANSFUSION
     Route: 042
     Dates: start: 20080616, end: 20080923
  31. PLATELETS [Concomitant]
     Indication: PLATELET TRANSFUSION
     Route: 042
     Dates: start: 20080614, end: 20080902
  32. FRESH FROZEN PLASMA [Concomitant]
     Indication: BLOOD PRODUCT TRANSFUSION
     Route: 042
     Dates: start: 20080922, end: 20080922

REACTIONS (9)
  - ANGINA PECTORIS [None]
  - CARDIAC FAILURE ACUTE [None]
  - CYTOMEGALOVIRUS VIRAEMIA [None]
  - DIARRHOEA [None]
  - METABOLIC ACIDOSIS [None]
  - MULTI-ORGAN FAILURE [None]
  - MYOCARDIAL INFARCTION [None]
  - RASH [None]
  - SEPSIS [None]
